FAERS Safety Report 16336242 (Version 2)
Quarter: 2019Q4

REPORT INFORMATION
  Report Type: Spontaneous
  Country: US (occurrence: US)
  Receive Date: 20190521
  Receipt Date: 20191230
  Transmission Date: 20200122
  Serious: No
  Sender: FDA-Public Use
  Company Number: US-EMD SERONO-7089988

PATIENT
  Sex: Female

DRUGS (1)
  1. REBIF [Suspect]
     Active Substance: INTERFERON BETA-1A
     Indication: MULTIPLE SCLEROSIS
     Route: 058
     Dates: start: 20090422

REACTIONS (6)
  - Paraesthesia [Unknown]
  - Injection site erythema [Unknown]
  - Injection site bruising [Unknown]
  - Arthritis [Not Recovered/Not Resolved]
  - Arthralgia [Unknown]
  - Hypoaesthesia [Unknown]
